FAERS Safety Report 7178008-5 (Version None)
Quarter: 2010Q4

REPORT INFORMATION
  Report Type: 
  Country: None (occurrence: None)
  Receive Date: 20101220
  Receipt Date: 20101208
  Transmission Date: 20110411
  Serious: Yes (Hospitalization, Other)
  Sender: FDA-Public Use
  Company Number: US-CELGENEUS-163-21880-10091762

PATIENT
  Sex: Male

DRUGS (6)
  1. REVLIMID [Suspect]
     Indication: MULTIPLE MYELOMA
     Route: 048
     Dates: start: 20100527, end: 20100830
  2. REVLIMID [Suspect]
     Route: 048
     Dates: start: 20101023, end: 20101118
  3. OXYCONTIN [Concomitant]
     Indication: PAIN
     Route: 065
     Dates: start: 20080424
  4. PERCOCET [Concomitant]
     Indication: PAIN
     Dosage: 5/325 1-2
     Route: 065
     Dates: start: 20080313
  5. AMBIEN [Concomitant]
     Indication: INSOMNIA
     Route: 065
     Dates: start: 20100923
  6. COUMADIN [Concomitant]
     Route: 065
     Dates: start: 20101118

REACTIONS (2)
  - DEEP VEIN THROMBOSIS [None]
  - GASTRIC ULCER [None]
